FAERS Safety Report 10640369 (Version 2)
Quarter: 2016Q2

REPORT INFORMATION
  Report Type: Spontaneous
  Country: US (occurrence: US)
  Receive Date: 20141209
  Receipt Date: 20160411
  Transmission Date: 20160815
  Serious: No
  Sender: FDA-Public Use
  Company Number: US-BAYER-2014-175501

PATIENT
  Age: 64 Year
  Sex: Female

DRUGS (2)
  1. MENOSTAR [Suspect]
     Active Substance: ESTRADIOL
     Indication: BONE DISORDER
  2. MENOSTAR [Suspect]
     Active Substance: ESTRADIOL
     Indication: ALOPECIA
     Dosage: UNK UNK, OW
     Route: 062
     Dates: start: 201409

REACTIONS (3)
  - Product adhesion issue [None]
  - Product adhesion issue [None]
  - Wrong technique in product usage process [None]

NARRATIVE: CASE EVENT DATE: 20151202
